FAERS Safety Report 5921229-7 (Version None)
Quarter: 2008Q4

REPORT INFORMATION
  Report Type: 
  Country: None (occurrence: None)
  Receive Date: 20081016
  Receipt Date: 20081008
  Transmission Date: 20090506
  Serious: Yes (Hospitalization)
  Sender: FDA-Public Use
  Company Number: FR-B.I. PHARMACEUTICALS,INC./RIDGEFIELD-2008-FF-00718FF

PATIENT
  Sex: Male

DRUGS (7)
  1. MICARDIS [Suspect]
     Indication: HYPERTENSION
     Dosage: 80MG
     Route: 048
     Dates: end: 20080701
  2. OMEPRAZOLE [Concomitant]
     Route: 048
     Dates: end: 20080701
  3. TENSTATEN [Concomitant]
     Indication: HYPERTENSION
     Route: 048
     Dates: end: 20080707
  4. TRIATEC [Concomitant]
     Indication: HYPERTENSION
     Dosage: 2.5MG
     Route: 048
     Dates: start: 20080708
  5. ZALDIAR [Concomitant]
  6. CERIS [Concomitant]
  7. XANAX [Concomitant]

REACTIONS (3)
  - CONFUSIONAL STATE [None]
  - FALL [None]
  - HYPONATRAEMIA [None]
